FAERS Safety Report 18753407 (Version 1)
Quarter: 2021Q1

REPORT INFORMATION
  Report Type: Spontaneous
  Country: CA (occurrence: CA)
  Receive Date: 20210118
  Receipt Date: 20210118
  Transmission Date: 20210419
  Serious: No
  Sender: FDA-Public Use
  Company Number: CA-TOLMAR, INC.-21CA024828

PATIENT
  Sex: Male

DRUGS (2)
  1. ELIGARD [Suspect]
     Active Substance: LEUPROLIDE ACETATE
     Indication: PRODUCT USED FOR UNKNOWN INDICATION
     Dosage: 45 MG
     Route: 065
  2. ELIGARD [Suspect]
     Active Substance: LEUPROLIDE ACETATE
     Dosage: 45 MG
     Route: 065
     Dates: start: 202012

REACTIONS (5)
  - Injection site reaction [Unknown]
  - Injection site mass [Unknown]
  - Injection site erythema [Unknown]
  - Injection site irritation [Unknown]
  - Injection site swelling [Unknown]

NARRATIVE: CASE EVENT DATE: 202012
